FAERS Safety Report 4395881-4 (Version None)
Quarter: 2004Q3

REPORT INFORMATION
  Report Type: 
  Country: None (occurrence: None)
  Receive Date: 20040713
  Receipt Date: 20040705
  Transmission Date: 20050211
  Serious: Yes (Other)
  Sender: FDA-Public Use
  Company Number: PHFR2004GB02723

PATIENT
  Age: 71 Year
  Sex: Male

DRUGS (6)
  1. TERBINAFINE HCL [Suspect]
     Indication: ONYCHOMYCOSIS
     Dosage: 250 MG, QD
     Route: 048
     Dates: start: 20040323, end: 20040426
  2. ATENOLOL [Concomitant]
     Indication: MYOCARDIAL ISCHAEMIA
     Dosage: 50MG/DAY
     Route: 048
  3. FELODIPINE [Concomitant]
     Indication: MYOCARDIAL ISCHAEMIA
     Dosage: 5MG/DAY
     Route: 048
  4. RAMIPRIL [Concomitant]
     Indication: MYOCARDIAL ISCHAEMIA
     Dosage: 10MG/DAY
     Route: 048
  5. SIMVASTATIN [Concomitant]
     Indication: MYOCARDIAL ISCHAEMIA
     Dosage: 40MG/DAY
     Route: 048
  6. ASPIRIN [Concomitant]
     Indication: MYOCARDIAL ISCHAEMIA
     Dosage: 75MG/DAY
     Route: 048

REACTIONS (1)
  - HYPERTENSION [None]
